FAERS Safety Report 5174605-7 (Version None)
Quarter: 2006Q4

REPORT INFORMATION
  Report Type: 
  Country: None (occurrence: None)
  Receive Date: 20061206
  Receipt Date: 20061124
  Transmission Date: 20070319
  Serious: Yes (Other)
  Sender: FDA-Public Use
  Company Number: FRWYE655027NOV06

PATIENT
  Age: 52 Year
  Sex: Female

DRUGS (3)
  1. EFFEXOR XR [Suspect]
     Indication: DEPRESSION
     Dosage: 150 MG TOTAL DAILY ORAL
     Route: 048
     Dates: start: 20061119, end: 20061119
  2. EFFEXOR [Suspect]
     Indication: DEPRESSION
     Dosage: SEE IMAGE
     Route: 048
     Dates: start: 20061101, end: 20061101
  3. EFFEXOR [Suspect]
     Indication: DEPRESSION
     Dosage: SEE IMAGE
     Route: 048
     Dates: start: 20061102, end: 20061118

REACTIONS (9)
  - CONVULSION [None]
  - DRUG INEFFECTIVE [None]
  - GAZE PALSY [None]
  - LOSS OF CONSCIOUSNESS [None]
  - NAUSEA [None]
  - PARAESTHESIA [None]
  - TREMOR [None]
  - URINARY INCONTINENCE [None]
  - VOMITING [None]
